FAERS Safety Report 4654904-5 (Version None)
Quarter: 2005Q2

REPORT INFORMATION
  Report Type: 
  Country: None (occurrence: None)
  Receive Date: 20050506
  Receipt Date: 20040402
  Transmission Date: 20051028
  Serious: No
  Sender: FDA-Public Use
  Company Number: US-GLAXOSMITHKLINE-A0505658A

PATIENT
  Sex: Female

DRUGS (3)
  1. AMOXIL [Suspect]
     Dosage: 500MG THREE TIMES PER DAY
     Route: 048
     Dates: start: 20040212, end: 20040222
  2. NORVASC [Concomitant]
  3. PLAVIX [Concomitant]

REACTIONS (5)
  - ADVERSE EVENT [None]
  - DRY THROAT [None]
  - EYE SWELLING [None]
  - NAUSEA [None]
  - THROAT IRRITATION [None]
